FAERS Safety Report 8439911-9 (Version None)
Quarter: 2012Q2

REPORT INFORMATION
  Report Type: 
  Country: None (occurrence: None)
  Receive Date: 20120615
  Receipt Date: 20120607
  Transmission Date: 20120825
  Serious: Yes (Life-Threatening, Hospitalization, Disabling, Other)
  Sender: FDA-Public Use
  Company Number: FR-AMGEN-FRASP2012012059

PATIENT
  Age: 36 Year
  Sex: Female

DRUGS (4)
  1. FOLIC ACID [Concomitant]
     Dosage: UNK
  2. METHOTREXATE [Suspect]
     Dosage: 20 MG, WEEKLY
     Route: 048
     Dates: start: 20101001
  3. ENBREL [Suspect]
     Indication: RHEUMATOID ARTHRITIS
     Dosage: 50 MG, UNK
     Route: 058
     Dates: start: 20110131, end: 20120125
  4. HYDROCORTISONE [Concomitant]
     Dosage: 30 MG, UNK

REACTIONS (9)
  - MULTI-ORGAN FAILURE [None]
  - INTRACARDIAC THROMBUS [None]
  - DISSEMINATED INTRAVASCULAR COAGULATION [None]
  - ARTERIAL THROMBOSIS LIMB [None]
  - INFLUENZA [None]
  - RHEUMATOID ARTHRITIS [None]
  - SEPTIC SHOCK [None]
  - TONSILLITIS [None]
  - RHABDOMYOLYSIS [None]
